FAERS Safety Report 14211824 (Version 2)
Quarter: 2017Q4

REPORT INFORMATION
  Report Type: Report from Study
  Country: US (occurrence: US)
  Receive Date: 20171121
  Receipt Date: 20171205
  Transmission Date: 20180321
  Serious: Yes (Other)
  Sender: FDA-Public Use
  Company Number: US-JAZZ-2017-US-015341

PATIENT
  Age: 59 Year
  Sex: Female

DRUGS (2)
  1. XYREM [Suspect]
     Active Substance: SODIUM OXYBATE
     Indication: NARCOLEPSY
     Dosage: 2.25 G, BID
     Route: 048
     Dates: start: 20171115, end: 2017
  2. XYREM [Suspect]
     Active Substance: SODIUM OXYBATE
     Indication: CATAPLEXY

REACTIONS (11)
  - Restlessness [Unknown]
  - Heart rate decreased [Unknown]
  - Choking [Unknown]
  - Feeling abnormal [Unknown]
  - Cough [Unknown]
  - Feeling hot [Unknown]
  - Respiratory depression [Unknown]
  - Chest pain [Unknown]
  - Dyspnoea [Unknown]
  - Peripheral coldness [Recovered/Resolved]
  - Psychomotor hyperactivity [Unknown]

NARRATIVE: CASE EVENT DATE: 20171115
